FAERS Safety Report 8518201-X (Version None)
Quarter: 2012Q3

REPORT INFORMATION
  Report Type: 
  Country: None (occurrence: None)
  Receive Date: 20120718
  Receipt Date: 20111102
  Transmission Date: 20120928
  Serious: No
  Sender: FDA-Public Use
  Company Number: US-BRISTOL-MYERS SQUIBB COMPANY-16210445

PATIENT
  Age: 68 Year
  Sex: Male

DRUGS (7)
  1. KLOR-CON [Concomitant]
  2. PACERONE [Concomitant]
  3. COUMADIN [Suspect]
     Indication: CEREBROVASCULAR ACCIDENT
     Route: 048
     Dates: start: 20070101
  4. METFORMIN HYDROCHLORIDE [Concomitant]
  5. MICARDIS [Concomitant]
  6. DYAZIDE [Concomitant]
  7. ACTOS [Concomitant]

REACTIONS (1)
  - RASH [None]
